FAERS Safety Report 20860886 (Version 1)
Quarter: 2022Q2

REPORT INFORMATION
  Report Type: Spontaneous
  Country: US (occurrence: None)
  Receive Date: 20220523
  Receipt Date: 20220523
  Transmission Date: 20220721
  Serious: No
  Sender: FDA-Public Use
  Company Number: None

PATIENT
  Sex: Male

DRUGS (1)
  1. ADBRY [Suspect]
     Active Substance: TRALOKINUMAB-LDRM
     Indication: Dermatitis atopic
     Dosage: ADMINISTER 2 INJECTIONS UNDER THE SKIN (SUBCUTANEOUS INJECTION) EVERY OTHER WEEK STARTING ON DAY 15?
     Route: 058

REACTIONS (2)
  - Dry skin [None]
  - Pruritus [None]
